FAERS Safety Report 9116768 (Version 2)
Quarter: 2013Q1

REPORT INFORMATION
  Report Type: Spontaneous
  Country: US (occurrence: US)
  Receive Date: 20130225
  Receipt Date: 20130314
  Transmission Date: 20140127
  Serious: Yes (Other)
  Sender: FDA-Public Use
  Company Number: US-PFIZER INC-2013067687

PATIENT
  Age: 49 Year
  Sex: Female
  Weight: 49.9 kg

DRUGS (3)
  1. NEURONTIN [Suspect]
     Indication: BACK PAIN
     Dosage: 900 MG, 1X/DAY
  2. NEURONTIN [Suspect]
     Indication: PAIN IN EXTREMITY
  3. MULTIVITAMINS [Concomitant]
     Indication: VITAMIN SUPPLEMENTATION
     Dosage: 7.5/500 MG, 4X/DAY

REACTIONS (2)
  - Urinary retention [Recovering/Resolving]
  - Cystitis escherichia [Recovering/Resolving]
